FAERS Safety Report 7025182-7 (Version None)
Quarter: 2010Q3

REPORT INFORMATION
  Report Type: 
  Country: None (occurrence: None)
  Receive Date: 20100916
  Receipt Date: 20100812
  Transmission Date: 20110219
  Serious: Yes (Hospitalization, Other)
  Sender: FDA-Public Use
  Company Number: DKLU1063179

PATIENT
  Age: 2 Year
  Sex: Female

DRUGS (10)
  1. SABRIL [Suspect]
     Indication: INFANTILE SPASMS
     Dosage: SEE IMAGE
     Route: 048
     Dates: start: 20090422, end: 20090401
  2. SABRIL [Suspect]
     Indication: INFANTILE SPASMS
     Dosage: SEE IMAGE
     Route: 048
     Dates: start: 20090401
  3. CLONAPIN (CLONAZEPAM) [Concomitant]
  4. MULTIVITAMIN (VIGRAN) [Concomitant]
  5. LOVENOX [Concomitant]
  6. CALCIUM CARBONATE [Concomitant]
  7. GABITRIL [Concomitant]
  8. SYNTHROID [Concomitant]
  9. ERGOCALCIFEROL [Concomitant]
  10. DIAMOX [Concomitant]

REACTIONS (3)
  - CONVULSION [None]
  - HYPOTHERMIA [None]
  - URINARY TRACT INFECTION [None]
